FAERS Safety Report 7290918-7 (Version None)
Quarter: 2011Q1

REPORT INFORMATION
  Report Type: 
  Country: None (occurrence: None)
  Receive Date: 20110214
  Receipt Date: 20110203
  Transmission Date: 20110831
  Serious: Yes (Hospitalization)
  Sender: FDA-Public Use
  Company Number: US-JNJFOC-20110202034

PATIENT
  Sex: Female
  Weight: 10.9 kg

DRUGS (6)
  1. ANTIBIOTICS [Concomitant]
  2. TPN [Concomitant]
  3. LEUKINE [Concomitant]
  4. PREVACID [Concomitant]
  5. IRON [Concomitant]
  6. REMICADE [Suspect]
     Indication: CROHN'S DISEASE
     Route: 042

REACTIONS (3)
  - CROHN'S DISEASE [None]
  - PYREXIA [None]
  - URINARY TRACT INFECTION [None]
